FAERS Safety Report 10559025 (Version 2)
Quarter: 2014Q4

REPORT INFORMATION
  Report Type: Spontaneous
  Country: IT (occurrence: IT)
  Receive Date: 20141103
  Receipt Date: 20141115
  Transmission Date: 20150529
  Serious: Yes (Hospitalization, Other)
  Sender: FDA-Public Use
  Company Number: IT-AUROBINDO-AUR-APL-2014-11463

PATIENT
  Age: 46 Year
  Sex: Male

DRUGS (4)
  1. OLANZAPINE. [Suspect]
     Active Substance: OLANZAPINE
     Indication: SCHIZOAFFECTIVE DISORDER
     Dosage: 20 MG, DAILY
     Route: 048
  2. VALPROATE [Interacting]
     Active Substance: VALPROATE SODIUM
     Indication: MOOD SWINGS
     Dosage: 400 UNK, UNK
     Route: 065
  3. OLANZAPINE. [Interacting]
     Active Substance: OLANZAPINE
     Dosage: 50 MG, DAILY
     Route: 065
  4. VALPROATE [Interacting]
     Active Substance: VALPROATE SODIUM
     Indication: IMPULSE-CONTROL DISORDER
     Dosage: 800 MG, DAILY
     Route: 065

REACTIONS (5)
  - Drug interaction [Recovering/Resolving]
  - Drug ineffective [Recovering/Resolving]
  - Disease recurrence [Recovering/Resolving]
  - Hallucination [Recovering/Resolving]
  - Mental disorder [Recovering/Resolving]
